FAERS Safety Report 5363362-7 (Version None)
Quarter: 2007Q2

REPORT INFORMATION
  Report Type: 
  Country: None (occurrence: None)
  Receive Date: 20070620
  Receipt Date: 20070607
  Transmission Date: 20071010
  Serious: Yes (Hospitalization)
  Sender: FDA-Public Use
  Company Number: US-AMGEN-US223560

PATIENT
  Sex: Female

DRUGS (17)
  1. EPOGEN [Suspect]
     Indication: DIALYSIS
     Route: 058
     Dates: start: 20030920
  2. LEVOCARNITINE [Concomitant]
     Route: 042
     Dates: start: 20070517
  3. RENAGEL [Concomitant]
     Route: 048
     Dates: start: 20061026
  4. PHOSLO [Concomitant]
     Route: 048
     Dates: start: 20030917
  5. COLACE [Concomitant]
     Route: 048
     Dates: start: 20060117
  6. PRILOSEC [Concomitant]
     Route: 048
     Dates: start: 20060726
  7. HUMULIN N [Concomitant]
     Route: 058
     Dates: start: 20061026
  8. SYNTHROID [Concomitant]
     Route: 048
     Dates: start: 20041216
  9. TOPROL-XL [Concomitant]
     Dates: start: 20061221
  10. ZOCOR [Concomitant]
     Route: 048
     Dates: start: 20030917
  11. VENOFER [Concomitant]
     Route: 042
     Dates: start: 20031007, end: 20070519
  12. ASPIRIN [Concomitant]
     Route: 048
     Dates: start: 20061026
  13. NORVASC [Concomitant]
     Route: 048
     Dates: start: 20060427
  14. CLONIDINE [Concomitant]
     Route: 048
     Dates: start: 20070509
  15. VASOTEC [Concomitant]
  16. COZAAR [Concomitant]
     Route: 048
     Dates: start: 20070509
  17. REGULAR INSULIN [Concomitant]
     Route: 058
     Dates: start: 20061026

REACTIONS (8)
  - ARTERIOVENOUS GRAFT SITE INFECTION [None]
  - CERVICAL VERTEBRAL FRACTURE [None]
  - COUGH [None]
  - DYSPNOEA [None]
  - FALL [None]
  - FLUID OVERLOAD [None]
  - FOOT FRACTURE [None]
  - REFRACTORY ANAEMIA [None]
